FAERS Safety Report 4455824-1 (Version None)
Quarter: 2004Q3

REPORT INFORMATION
  Report Type: 
  Country: None (occurrence: None)
  Receive Date: 20040920
  Receipt Date: 20040907
  Transmission Date: 20050211
  Serious: Yes (Other)
  Sender: FDA-Public Use
  Company Number: S04-USA-06114-01

PATIENT
  Age: 63 Year
  Sex: Female

DRUGS (8)
  1. CELEXA [Suspect]
     Indication: ANXIETY
     Dosage: 40 MG QHS PO
     Route: 048
     Dates: start: 20040101, end: 20040101
  2. CELEXA [Suspect]
     Indication: DEPRESSION
     Dosage: 40 MG QHS PO
     Route: 048
     Dates: start: 20040101, end: 20040101
  3. CELEXA [Suspect]
     Indication: ANXIETY
     Dosage: 10 MG QHS PO
     Route: 048
     Dates: start: 20030601, end: 20030101
  4. CELEXA [Suspect]
     Indication: DEPRESSION
     Dosage: 10 MG QHS PO
     Route: 048
     Dates: start: 20030601, end: 20030101
  5. CELEXA [Suspect]
     Indication: ANXIETY
     Dosage: 20 MG QHS PO
     Route: 048
     Dates: start: 20030101, end: 20040101
  6. CELEXA [Suspect]
     Indication: DEPRESSION
     Dosage: 20 MG QHS PO
     Route: 048
     Dates: start: 20030101, end: 20040101
  7. CELEXA [Suspect]
     Indication: ANXIETY
     Dates: start: 20040101, end: 20040101
  8. CELEXA [Suspect]
     Indication: DEPRESSION
     Dates: start: 20040101, end: 20040101

REACTIONS (1)
  - PULMONARY FIBROSIS [None]
